FAERS Safety Report 24347857 (Version 1)
Quarter: 2024Q3

REPORT INFORMATION
  Report Type: Spontaneous
  Country: US (occurrence: US)
  Receive Date: 20240922
  Receipt Date: 20240922
  Transmission Date: 20241016
  Serious: Yes (Other)
  Sender: BRISTOL MYERS SQUIBB
  Company Number: US-BRISTOL-MYERS SQUIBB COMPANY-2024-149716

PATIENT
  Age: 73 Year
  Sex: Female

DRUGS (8)
  1. REVLIMID [Suspect]
     Active Substance: LENALIDOMIDE
     Indication: Plasma cell myeloma
     Route: 048
     Dates: start: 20240808
  2. REVLIMID [Suspect]
     Active Substance: LENALIDOMIDE
     Dates: start: 20240831
  3. XARELTO [Concomitant]
     Active Substance: RIVAROXABAN
  4. HYDROMORPHONE [Concomitant]
     Active Substance: HYDROMORPHONE
  5. OMEPRAZOLE [Concomitant]
     Active Substance: OMEPRAZOLE
     Dosage: DR
  6. METOPROLOL SUCCINATE [Concomitant]
     Active Substance: METOPROLOL SUCCINATE
     Dosage: ER
  7. VALTREX [Concomitant]
     Active Substance: VALACYCLOVIR HYDROCHLORIDE
  8. VITAMIN B12 [Concomitant]
     Active Substance: CYANOCOBALAMIN

REACTIONS (1)
  - Adverse event [Unknown]
